FAERS Safety Report 20025740 (Version 2)
Quarter: 2021Q4

REPORT INFORMATION
  Report Type: Spontaneous
  Country: TR (occurrence: None)
  Receive Date: 20211102
  Receipt Date: 20211124
  Transmission Date: 20220304
  Serious: Yes (Death, Other)
  Sender: FDA-Public Use
  Company Number: TR-ROCHE-2944937

PATIENT
  Sex: Male

DRUGS (1)
  1. ACTEMRA [Suspect]
     Active Substance: TOCILIZUMAB
     Indication: Hyper IgD syndrome
     Route: 058

REACTIONS (2)
  - Gastrointestinal perforation [Fatal]
  - Haemorrhage [Unknown]

NARRATIVE: CASE EVENT DATE: 20211017
